FAERS Safety Report 7390228-3 (Version None)
Quarter: 2011Q2

REPORT INFORMATION
  Report Type: 
  Country: None (occurrence: None)
  Receive Date: 20110401
  Receipt Date: 20110323
  Transmission Date: 20111010
  Serious: Yes (Death, Hospitalization)
  Sender: FDA-Public Use
  Company Number: JP-ROCHE-763752

PATIENT

DRUGS (15)
  1. ERBITUX [Concomitant]
     Route: 041
     Dates: start: 20101115, end: 20101115
  2. LEVOFOLINATE [Concomitant]
     Dosage: FORM:  INJECTION
     Route: 041
  3. FLUOROURACIL [Concomitant]
     Route: 041
  4. AVASTIN [Suspect]
     Indication: LARGE INTESTINE CARCINOMA
     Route: 041
     Dates: start: 20090122, end: 20101004
  5. ERBITUX [Concomitant]
     Route: 041
     Dates: start: 20101108, end: 20101108
  6. DIOVAN [Concomitant]
     Route: 048
     Dates: start: 20101215
  7. LIPITOR [Concomitant]
     Route: 048
  8. ELPLAT [Concomitant]
     Dosage: FORM:  INJECTION
     Route: 041
  9. IRINOTECAN [Concomitant]
     Dosage: FORM:  INJECTION
     Route: 041
  10. FLUOROURACIL [Concomitant]
     Route: 040
  11. ERBITUX [Concomitant]
     Route: 041
     Dates: start: 20101101, end: 20101101
  12. FLUOROURACIL [Concomitant]
     Dosage: FORM:  INJECTION
     Route: 040
  13. LEVOFOLINATE [Concomitant]
     Route: 041
  14. ERBITUX [Concomitant]
     Dosage: FORM:  INJECTION
     Route: 041
     Dates: start: 20101025, end: 20101025
  15. FLUOROURACIL [Concomitant]
     Dosage: FORM:  INJECTION
     Route: 041

REACTIONS (2)
  - CEREBRAL HAEMORRHAGE [None]
  - JAUNDICE [None]
